FAERS Safety Report 8883525 (Version 2)
Quarter: 2013Q1

REPORT INFORMATION
  Report Type: Spontaneous
  Country: DE (occurrence: DE)
  Receive Date: 20121102
  Receipt Date: 20130118
  Transmission Date: 20140127
  Serious: Yes (Hospitalization)
  Sender: FDA-Public Use
  Company Number: DE-PFIZER INC-2012268725

PATIENT
  Age: 45 Year
  Sex: Male
  Weight: 78 kg

DRUGS (2)
  1. AZULFIDINE [Suspect]
     Indication: POLYARTHRITIS
     Dosage: 1200 MG, DAILY
     Route: 048
     Dates: start: 2001, end: 2006
  2. AZULFIDINE [Suspect]
     Dosage: 1200 MG, DAILY
     Route: 048
     Dates: start: 201203, end: 201210

REACTIONS (2)
  - Myalgia [Unknown]
  - Myotonic dystrophy [Unknown]
